FAERS Safety Report 19855455 (Version 1)
Quarter: 2021Q3

REPORT INFORMATION
  Report Type: Spontaneous
  Country: US (occurrence: US)
  Receive Date: 20210916
  Receipt Date: 20210916
  Transmission Date: 20211014
  Serious: Yes (Hospitalization)
  Sender: FDA-Public Use
  Company Number: None

PATIENT
  Age: 78 Year
  Sex: Female

DRUGS (8)
  1. BACLOFEN. [Concomitant]
     Active Substance: BACLOFEN
  2. METOPROL TAR [Concomitant]
  3. AVONEX [Suspect]
     Active Substance: INTERFERON BETA-1A
     Indication: MULTIPLE SCLEROSIS
     Route: 030
     Dates: start: 20201030
  4. ATORVASTATIN [Concomitant]
     Active Substance: ATORVASTATIN
  5. ELIQUIS [Concomitant]
     Active Substance: APIXABAN
  6. ROSUVASTATIN. [Concomitant]
     Active Substance: ROSUVASTATIN
  7. OXYBUTYNIN. [Concomitant]
     Active Substance: OXYBUTYNIN CHLORIDE
  8. OMEPRAZOLE. [Concomitant]
     Active Substance: OMEPRAZOLE

REACTIONS (1)
  - Cerebrovascular accident [None]

NARRATIVE: CASE EVENT DATE: 20210722
